FAERS Safety Report 9866886 (Version 1)
Quarter: 2014Q1

REPORT INFORMATION
  Report Type: Spontaneous
  Country: US (occurrence: None)
  Receive Date: 20140131
  Receipt Date: 20140131
  Transmission Date: 20141002
  Serious: Yes (Hospitalization, Other)
  Sender: FDA-Public Use
  Company Number: US-DEXPHARM-20140018

PATIENT
  Sex: 0
  Weight: .61 kg

DRUGS (1)
  1. CHLORHEXIDINE GLUCONATE [Suspect]
     Indication: STERILISATION

REACTIONS (2)
  - Chemical burn of skin [None]
  - Scar [None]
